FAERS Safety Report 15458803 (Version 1)
Quarter: 2018Q4

REPORT INFORMATION
  Report Type: Spontaneous
  Country: US (occurrence: US)
  Receive Date: 20181001
  Receipt Date: 20181001
  Transmission Date: 20190204
  Serious: Yes (Death)
  Sender: FDA-Public Use
  Company Number: None

PATIENT
  Sex: Female

DRUGS (1)
  1. ODANSETRON [Suspect]
     Active Substance: ONDANSETRON

REACTIONS (8)
  - Cardiac arrest [None]
  - Tachycardia [None]
  - Pulmonary oedema [None]
  - Ventricular arrhythmia [None]
  - Pleural effusion [None]
  - Cardio-respiratory arrest [None]
  - Supraventricular tachycardia [None]
  - Electrocardiogram QT prolonged [None]
